FAERS Safety Report 11720177 (Version 1)
Quarter: 2015Q4

REPORT INFORMATION
  Report Type: Spontaneous
  Country: US (occurrence: US)
  Receive Date: 20151110
  Receipt Date: 20151110
  Transmission Date: 20160304
  Serious: No
  Sender: FDA-Public Use
  Company Number: US-PERRIGO-14US011229

PATIENT
  Sex: Female
  Weight: 95.24 kg

DRUGS (4)
  1. LAMICTAL [Concomitant]
     Active Substance: LAMOTRIGINE
     Indication: EPILEPSY
     Dosage: UNK
     Route: 065
     Dates: start: 1994
  2. KEPPRA [Concomitant]
     Active Substance: LEVETIRACETAM
     Indication: EPILEPSY
     Dosage: UNK
     Route: 065
     Dates: start: 1994
  3. CICLOPIROX RX 8% 3C0 [Suspect]
     Active Substance: CICLOPIROX
     Indication: TINEA PEDIS
     Dosage: THIN LAYER, TWICE A DAY
     Route: 061
     Dates: start: 2012
  4. TOPAMAX [Concomitant]
     Active Substance: TOPIRAMATE
     Indication: EPILEPSY
     Dosage: UNK
     Route: 065
     Dates: start: 1994

REACTIONS (5)
  - Inappropriate schedule of drug administration [Unknown]
  - Onychomycosis [None]
  - Drug ineffective [Unknown]
  - Condition aggravated [Unknown]
  - Incorrect drug administration duration [Unknown]

NARRATIVE: CASE EVENT DATE: 2012
